FAERS Safety Report 5869954-0 (Version None)
Quarter: 2008Q3

REPORT INFORMATION
  Report Type: 
  Country: None (occurrence: None)
  Receive Date: 20080904
  Receipt Date: 20080901
  Transmission Date: 20090109
  Serious: Yes (Hospitalization, Other)
  Sender: FDA-Public Use
  Company Number: FR-BRISTOL-MYERS SQUIBB COMPANY-14219935

PATIENT
  Age: 77 Year
  Sex: Female

DRUGS (15)
  1. ORENCIA [Suspect]
     Indication: RHEUMATOID ARTHRITIS
     Dates: start: 20071123, end: 20071123
  2. HUMIRA [Suspect]
     Indication: RHEUMATOID ARTHRITIS
     Dates: start: 20050601, end: 20071001
  3. NOVATREX [Suspect]
     Indication: RHEUMATOID ARTHRITIS
  4. CORTANCYL [Suspect]
     Indication: RHEUMATOID ARTHRITIS
     Dosage: INCREASED TO 10 MG/D SINCE DECEMBER 2007
  5. FOLIC ACID [Concomitant]
  6. DIFFU-K [Concomitant]
  7. ACTONEL [Concomitant]
  8. MOPRAL [Concomitant]
  9. RIVOTRIL [Concomitant]
  10. HEMIGOXINE NATIVELLE [Concomitant]
  11. LASIX [Concomitant]
  12. PREVISCAN [Concomitant]
  13. ACETAMINOPHEN [Concomitant]
  14. TOPALGIC [Concomitant]
  15. INDOCIN [Concomitant]

REACTIONS (2)
  - CARDIAC FAILURE [None]
  - TUBERCULOSIS [None]
